FAERS Safety Report 9954592 (Version 1)
Quarter: 2014Q1

REPORT INFORMATION
  Report Type: Spontaneous
  Country: US (occurrence: US)
  Receive Date: 20140304
  Receipt Date: 20140304
  Transmission Date: 20141002
  Serious: Yes (Hospitalization, Other)
  Sender: FDA-Public Use
  Company Number: US-ELI_LILLY_AND_COMPANY-US201402007638

PATIENT
  Sex: Female

DRUGS (7)
  1. HUMULIN 30% REGULAR, 70% NPH [Suspect]
     Indication: TYPE 2 DIABETES MELLITUS
     Dosage: 45 U, TID
     Route: 065
  2. HYDRALAZINE [Suspect]
     Indication: MYOCARDIAL INFARCTION
     Route: 065
  3. LISINOPRIL [Concomitant]
     Dosage: 20 MG, UNKNOWN
  4. IBUPROFEN [Concomitant]
     Dosage: 600 MG, PRN
  5. FUROSEMIDE [Concomitant]
     Dosage: 80 MG, QOD
  6. ATENOLOL [Concomitant]
     Dosage: 10 MG, QD
  7. AMLODIPINE [Concomitant]
     Dosage: 10 MG, QD

REACTIONS (9)
  - Spinal fracture [Unknown]
  - Upper limb fracture [Unknown]
  - Fall [Unknown]
  - Pulmonary fibrosis [Unknown]
  - Myocardial infarction [Unknown]
  - Cataract [Not Recovered/Not Resolved]
  - Mental impairment [Unknown]
  - Hypersensitivity [Recovered/Resolved with Sequelae]
  - Blood glucose decreased [Unknown]
